FAERS Safety Report 8187493-1 (Version None)
Quarter: 2012Q1

REPORT INFORMATION
  Report Type: 
  Country: None (occurrence: None)
  Receive Date: 20120217
  Receipt Date: 20110308
  Transmission Date: 20120608
  Serious: Yes (Hospitalization, Other)
  Sender: FDA-Public Use
  Company Number: AUR-APL-2011-00883

PATIENT
  Age: 63 Year
  Sex: Male
  Weight: 104.3 kg

DRUGS (9)
  1. FOLIC ACID [Concomitant]
  2. METOPROLOL TARTRATE [Concomitant]
  3. SIMVASTATIN [Suspect]
     Indication: PRODUCT USED FOR UNKNOWN INDICATION
     Dosage: 20 MG (20 MG, 1 IN 1 D), ORAL
     Route: 048
     Dates: start: 20080615, end: 20110302
  4. CP-690, 550 [Suspect]
     Indication: RHEUMATOID ARTHRITIS
     Dosage: 20 MG (10 MG, 2 IN 1 D), ORAL
     Route: 048
     Dates: start: 20100819, end: 20110228
  5. METHOTREXATE [Suspect]
     Indication: RHEUMATOID ARTHRITIS
     Dosage: (20 MG, 1 WK), ORAL
     Route: 048
     Dates: start: 20090915, end: 20110302
  6. MULTIVITAMIN [Concomitant]
  7. ASPIRIN [Concomitant]
  8. AZITHROMYCIN [Concomitant]
  9. ZOLPIDEM [Concomitant]

REACTIONS (1)
  - LIVER FUNCTION TEST ABNORMAL [None]
